FAERS Safety Report 6487060-1 (Version None)
Quarter: 2009Q4

REPORT INFORMATION
  Report Type: 
  Country: None (occurrence: None)
  Receive Date: 20091209
  Receipt Date: 20091209
  Transmission Date: 20100525
  Serious: Yes (Hospitalization)
  Sender: FDA-Public Use
  Company Number: None

PATIENT
  Age: 1 Day
  Sex: Female

DRUGS (1)
  1. GENTAMICIN SULFATE [Suspect]
     Indication: INFANT
     Dosage: ONE TIME OPHTHALMIC
     Route: 047
     Dates: start: 20091011, end: 20091011

REACTIONS (4)
  - APPLICATION SITE EXFOLIATION [None]
  - APPLICATION SITE REACTION [None]
  - APPLICATION SITE SWELLING [None]
  - EYE DISCHARGE [None]
